FAERS Safety Report 6566842-1 (Version None)
Quarter: 2010Q1

REPORT INFORMATION
  Report Type: 
  Country: None (occurrence: None)
  Receive Date: 20100202
  Receipt Date: 20100131
  Transmission Date: 20100710
  Serious: Yes (Hospitalization)
  Sender: FDA-Public Use
  Company Number: A0842208A

PATIENT
  Sex: Female

DRUGS (4)
  1. TYKERB [Suspect]
     Dosage: 1250MG PER DAY
     Route: 048
     Dates: start: 20091231, end: 20100115
  2. XELODA [Concomitant]
     Route: 065
  3. SUPEUDOL [Concomitant]
     Route: 065
  4. TYLENOL (CAPLET) [Concomitant]
     Route: 065

REACTIONS (5)
  - APHTHOUS STOMATITIS [None]
  - BLOOD POTASSIUM DECREASED [None]
  - DYSPNOEA [None]
  - HEART RATE DECREASED [None]
  - HYPOAESTHESIA [None]
